FAERS Safety Report 13008402 (Version 2)
Quarter: 2016Q4

REPORT INFORMATION
  Report Type: Spontaneous
  Country: US (occurrence: US)
  Receive Date: 20161208
  Receipt Date: 20161219
  Transmission Date: 20170207
  Serious: Yes (Death, Life-Threatening, Hospitalization)
  Sender: FDA-Public Use
  Company Number: US-UNITED THERAPEUTICS-UNT-2016-015985

PATIENT
  Age: 3 Year
  Sex: Male
  Weight: 11.79 kg

DRUGS (2)
  1. REMODULIN [Suspect]
     Active Substance: TREPROSTINIL
     Indication: HEPATOPULMONARY SYNDROME
     Dosage: 0.011 ?G/KG, CONTINUING
     Route: 058
  2. REMODULIN [Suspect]
     Active Substance: TREPROSTINIL
     Indication: PULMONARY HYPERTENSION
     Dosage: 0.051 ?G/KG, CONTINUING
     Route: 058
     Dates: start: 20160407, end: 20161003

REACTIONS (4)
  - Pleural effusion [Unknown]
  - Acute respiratory failure [Fatal]
  - Hepatopulmonary syndrome [Unknown]
  - Pulmonary hypertension [Unknown]

NARRATIVE: CASE EVENT DATE: 2016
